FAERS Safety Report 10699332 (Version 6)
Quarter: 2016Q1

REPORT INFORMATION
  Report Type: Report from Study
  Country: BR (occurrence: BR)
  Receive Date: 20150109
  Receipt Date: 20160202
  Transmission Date: 20160525
  Serious: Yes (Other)
  Sender: FDA-Public Use
  Company Number: BR-ABBVIE-15K-020-1329946-00

PATIENT
  Age: 26 Year
  Sex: Male
  Weight: 78 kg

DRUGS (8)
  1. MESALAZINE [Concomitant]
     Active Substance: MESALAMINE
     Indication: HAEMORRHAGE
     Route: 054
     Dates: start: 2014
  2. HUMIRA [Suspect]
     Active Substance: ADALIMUMAB
     Indication: CROHN^S DISEASE
     Dosage: INDUCTION DOSE, WEEK 0
     Route: 058
     Dates: start: 20141009, end: 20141009
  3. HUMIRA [Suspect]
     Active Substance: ADALIMUMAB
     Dosage: MAINTENANCE DOSE
     Route: 058
  4. MESALAZINE [Concomitant]
     Active Substance: MESALAMINE
     Indication: CROHN^S DISEASE
     Route: 048
     Dates: start: 201403
  5. HUMIRA [Suspect]
     Active Substance: ADALIMUMAB
     Dosage: INDUCTION DOSE, WEEK 1
     Route: 058
     Dates: start: 20141016, end: 20141016
  6. AZATHIOPRINE. [Concomitant]
     Active Substance: AZATHIOPRINE
     Indication: HAEMORRHAGE
     Route: 048
     Dates: start: 2014
  7. PANTOPRAZOLE [Concomitant]
     Active Substance: PANTOPRAZOLE SODIUM
     Indication: GASTRIC DISORDER
     Route: 048
     Dates: start: 201510
  8. MESALAZINE [Concomitant]
     Active Substance: MESALAMINE
     Indication: HAEMORRHOIDS
     Route: 048
     Dates: start: 201404

REACTIONS (11)
  - Suicidal ideation [Recovering/Resolving]
  - Sleep disorder [Unknown]
  - Anxiety [Unknown]
  - Feeling abnormal [Recovering/Resolving]
  - Gastrointestinal haemorrhage [Unknown]
  - Emotional disorder [Unknown]
  - Depression [Recovered/Resolved]
  - Asthenia [Not Recovered/Not Resolved]
  - Diarrhoea [Recovering/Resolving]
  - Road traffic accident [Unknown]
  - Drug ineffective [Unknown]

NARRATIVE: CASE EVENT DATE: 2014
